FAERS Safety Report 4367189-4 (Version None)
Quarter: 2004Q2

REPORT INFORMATION
  Report Type: 
  Country: None (occurrence: None)
  Receive Date: 20040528
  Receipt Date: 20031216
  Transmission Date: 20050107
  Serious: Yes (Other)
  Sender: FDA-Public Use
  Company Number: PHNU2003DE04454

PATIENT
  Sex: Female

DRUGS (6)
  1. LOCOL [Suspect]
     Indication: HYPERCHOLESTEROLAEMIA
     Dosage: 20 MG/DAY
     Route: 048
  2. LOCOL [Suspect]
     Dosage: 40 MG/DAY
     Route: 048
  3. DELIX [Concomitant]
  4. METOPROLOL SUCCINATE [Concomitant]
  5. DIGITALIS [Concomitant]
  6. DICLOFENAC [Suspect]
     Indication: PAIN

REACTIONS (1)
  - HYPERTENSION [None]
